FAERS Safety Report 4811757-X (Version None)
Quarter: 2005Q4

REPORT INFORMATION
  Report Type: 
  Country: None (occurrence: None)
  Receive Date: 20051028
  Receipt Date: 20050922
  Transmission Date: 20060501
  Serious: Yes (Hospitalization)
  Sender: FDA-Public Use
  Company Number: DE-BOEHRINGER INGELHEIM PHARMACEUTICALS, INC.-2005-DE-04020DE

PATIENT
  Sex: Male
  Weight: 70 kg

DRUGS (4)
  1. SPIRIVA [Suspect]
     Indication: CHRONIC OBSTRUCTIVE PULMONARY DISEASE
  2. SPIRIVA [Suspect]
     Indication: BRONCHITIS CHRONIC
  3. AEROMAX [Concomitant]
     Indication: CHRONIC OBSTRUCTIVE PULMONARY DISEASE
     Dosage: 2X1/DAY
  4. NIFEDIPINE [Concomitant]
     Indication: HYPERTENSION

REACTIONS (8)
  - ANGIONEUROTIC OEDEMA [None]
  - CHEST DISCOMFORT [None]
  - CHRONIC SINUSITIS [None]
  - DRUG HYPERSENSITIVITY [None]
  - DYSPNOEA [None]
  - GASTROINTESTINAL CANDIDIASIS [None]
  - URINARY TRACT INFECTION ENTEROCOCCAL [None]
  - URTICARIA [None]
